FAERS Safety Report 6640567-6 (Version None)
Quarter: 2010Q1

REPORT INFORMATION
  Report Type: 
  Country: None (occurrence: None)
  Receive Date: 20100318
  Receipt Date: 20100311
  Transmission Date: 20100710
  Serious: Yes (Hospitalization, Other)
  Sender: FDA-Public Use
  Company Number: US-ABBOTT-09P-163-0588758-00

PATIENT
  Sex: Male

DRUGS (5)
  1. HUMIRA [Suspect]
     Indication: CROHN'S DISEASE
     Route: 058
     Dates: start: 20090303, end: 20090707
  2. HUMIRA [Suspect]
     Dates: start: 20090813
  3. ACTONEL [Concomitant]
     Indication: OSTEOPOROSIS
     Dates: start: 20080206
  4. AZATHIOPRINE [Concomitant]
     Indication: CROHN'S DISEASE
     Dates: start: 20080509
  5. PREDNISONE [Concomitant]
     Indication: CROHN'S DISEASE

REACTIONS (3)
  - BACTERIAL SEPSIS [None]
  - DEEP VEIN THROMBOSIS [None]
  - GASTROENTERITIS VIRAL [None]
